FAERS Safety Report 18090880 (Version 1)
Quarter: 2020Q3

REPORT INFORMATION
  Report Type: Spontaneous
  Country: CA (occurrence: CA)
  Receive Date: 20200730
  Receipt Date: 20200730
  Transmission Date: 20201103
  Serious: Yes (Other)
  Sender: FDA-Public Use
  Company Number: CA-ACCORD-192869

PATIENT
  Age: 67 Year
  Sex: Female

DRUGS (15)
  1. METHOTREXATE. [Suspect]
     Active Substance: METHOTREXATE
     Indication: RHEUMATOID ARTHRITIS
     Route: 065
  2. ACTEMRA [Suspect]
     Active Substance: TOCILIZUMAB
     Indication: PRODUCT USED FOR UNKNOWN INDICATION
     Route: 065
  3. HYDROXYCHLOROQUINE [Suspect]
     Active Substance: HYDROXYCHLOROQUINE
     Indication: PRODUCT USED FOR UNKNOWN INDICATION
     Route: 065
  4. FUROSEMIDE. [Concomitant]
     Active Substance: FUROSEMIDE
     Dosage: 1 EVERY 1 DAYS
     Route: 065
  5. ERGOCALCIFEROL. [Concomitant]
     Active Substance: ERGOCALCIFEROL
     Dosage: 1 EVERY 1 WEEKS
     Route: 065
  6. MORPHINE [Concomitant]
     Active Substance: MORPHINE
     Route: 065
  7. DORZOLAMIDE/TIMOLOL [Concomitant]
     Active Substance: DORZOLAMIDE\TIMOLOL
     Dosage: 2 EVERY 1 DAYS
     Route: 065
  8. CIMZIA [Suspect]
     Active Substance: CERTOLIZUMAB PEGOL
     Indication: PRODUCT USED FOR UNKNOWN INDICATION
     Dosage: SINGLE?USE PREFILLED SYRINGE
     Route: 058
  9. VALSARTAN. [Concomitant]
     Active Substance: VALSARTAN
     Dosage: 1 EVERY 1 DAYS
     Route: 065
  10. ORENCIA [Suspect]
     Active Substance: ABATACEPT
     Indication: RHEUMATOID ARTHRITIS
     Route: 065
  11. ESTROGEL [Concomitant]
     Active Substance: ESTRADIOL
     Dosage: 3 EVERY 1 DAYS
     Route: 065
  12. ZINGIBER OFFICINALE/ZINGIBER OFFICINALE RHIZOME [Concomitant]
     Route: 048
  13. POTASSIUM [Concomitant]
     Active Substance: POTASSIUM
     Dosage: 1 EVERY 1 DAYS
     Route: 065
  14. ENBREL [Suspect]
     Active Substance: ETANERCEPT
     Indication: RHEUMATOID ARTHRITIS
     Route: 065
  15. XALATAN [Concomitant]
     Active Substance: LATANOPROST
     Dosage: 1 EVERY 1 DAYS
     Route: 047

REACTIONS (8)
  - Glaucoma [Unknown]
  - Bronchitis [Unknown]
  - Drug ineffective [Unknown]
  - Synovitis [Unknown]
  - Diverticulitis [Unknown]
  - Colitis microscopic [Unknown]
  - Drug intolerance [Unknown]
  - C-reactive protein increased [Unknown]
